FAERS Safety Report 8165853-2 (Version None)
Quarter: 2012Q1

REPORT INFORMATION
  Report Type: 
  Country: None (occurrence: None)
  Receive Date: 20120227
  Receipt Date: 20111014
  Transmission Date: 20120608
  Serious: Yes (Other)
  Sender: FDA-Public Use
  Company Number: US-MYLANLABS-2011S1021618

PATIENT
  Sex: Male

DRUGS (7)
  1. SOTRET [Suspect]
     Indication: ACNE
  2. CLARAVIS [Suspect]
     Indication: ACNE
  3. AMNESTEEM [Suspect]
     Indication: ACNE
  4. CLARAVIS [Suspect]
     Dates: start: 20100101
  5. ACCUTANE [Suspect]
     Indication: ACNE
     Dates: start: 19830101, end: 19840101
  6. AMNESTEEM [Suspect]
     Dates: start: 20100101
  7. SOTRET [Suspect]
     Dates: start: 20100101

REACTIONS (2)
  - INFLAMMATORY BOWEL DISEASE [None]
  - COLITIS ULCERATIVE [None]
